FAERS Safety Report 5093956-8 (Version None)
Quarter: 2006Q3

REPORT INFORMATION
  Report Type: 
  Country: None (occurrence: None)
  Receive Date: 20060829
  Receipt Date: 20060829
  Transmission Date: 20061208
  Serious: Yes (Other)
  Sender: FDA-Public Use
  Company Number: None

PATIENT
  Age: 57 Year
  Sex: Female
  Weight: 77.1115 kg

DRUGS (1)
  1. PROMETHAZINE [Suspect]
     Indication: MULTIPLE ALLERGIES
     Dosage: 2 DAILY PO
     Route: 048
     Dates: start: 20060810, end: 20060825

REACTIONS (3)
  - DRY MOUTH [None]
  - MUSCULOSKELETAL STIFFNESS [None]
  - PHARMACEUTICAL PRODUCT COMPLAINT [None]
